FAERS Safety Report 17202665 (Version 1)
Quarter: 2019Q4

REPORT INFORMATION
  Report Type: Spontaneous
  Country: FI (occurrence: FI)
  Receive Date: 20191226
  Receipt Date: 20191226
  Transmission Date: 20200122
  Serious: Yes (Other)
  Sender: FDA-Public Use
  Company Number: FI-MYLANLABS-2019M1126262

PATIENT
  Age: 80 Year
  Sex: Male

DRUGS (20)
  1. AVASTIN                            /00848101/ [Suspect]
     Active Substance: SIMVASTATIN
     Indication: COLORECTAL CANCER METASTATIC
     Dosage: TOTALLY FIVE CYCLES
     Route: 065
     Dates: start: 20160805, end: 20161118
  2. PEGORION [Concomitant]
     Active Substance: POLYETHYLENE GLYCOL 4000
     Dosage: WHEN NEEDED 12 G MIXTURE1 TO 8 BAGS (NOT MORE THAN 8 BAGS/DAY)
     Route: 065
  3. XELODA [Suspect]
     Active Substance: CAPECITABINE
     Indication: COLORECTAL CANCER METASTATIC
     Dosage: TOTALLY FIVE CYCLES
     Route: 065
     Dates: start: 20160805, end: 20161118
  4. NITROGLYCERIN. [Concomitant]
     Active Substance: NITROGLYCERIN
     Dosage: WHEN NEEDED
     Route: 060
  5. LOSARTAN ORION [Concomitant]
     Route: 048
  6. BISOPROLOL RATIOPHARM [Concomitant]
     Active Substance: BISOPROLOL
     Route: 048
  7. XELODA [Suspect]
     Active Substance: CAPECITABINE
     Dosage: UNK
     Route: 065
     Dates: start: 2017
  8. ORMOX [Concomitant]
     Dosage: 20 MILLIGRAM, QD
     Route: 048
  9. IMOCUR                             /00384302/ [Concomitant]
     Dosage: WHEN NEEDED  2 CAPSULES EIGHT TIMES NOT MORE THAN16 MG PER DAY
     Route: 048
  10. SANDOZ ROSUVASTATIN [Concomitant]
     Route: 048
  11. DEXAMETASON                        /00016001/ [Concomitant]
     Active Substance: DEXAMETHASONE
     Indication: PREMEDICATION
     Dosage: WHEN NEEDED (NOT MORE THAN 9 MG PER DAY) PREMEDICATION 6 TABLETS (9 MG) AT TREATMENT DAY AND 3 TABLE
     Route: 048
  12. GRANISETRON STADA [Concomitant]
     Dosage: WHEN NEEDED
     Route: 065
  13. KLEXANE [Concomitant]
     Active Substance: ENOXAPARIN
     Indication: PULMONARY EMBOLISM
     Dosage: 40 MILLIGRAM, QD
     Route: 058
  14. OXALIPLATIN. [Suspect]
     Active Substance: OXALIPLATIN
     Indication: COLORECTAL CANCER METASTATIC
     Dosage: TOTALLY FIVE CYCLES
     Route: 065
     Dates: start: 20160805, end: 20161118
  15. AVASTIN                            /00848101/ [Suspect]
     Active Substance: SIMVASTATIN
     Dosage: TOTALLY FIVE CYCLES
     Route: 065
     Dates: start: 2017
  16. XELODA [Suspect]
     Active Substance: CAPECITABINE
     Dosage: ADJUVANT THERAPY, TOTALLY EIGHT CYCLES
     Route: 065
     Dates: start: 2014
  17. LATANOPROST PFIZER [Concomitant]
     Active Substance: LATANOPROST
     Dosage: DOSE: 50MCG/ML
     Route: 047
  18. SOMAC [Concomitant]
     Active Substance: PANTOPRAZOLE SODIUM
     Dosage: 20 MILLIGRAM, QD
     Route: 048
  19. PRIMPERAN [Concomitant]
     Active Substance: METOCLOPRAMIDE HYDROCHLORIDE
     Dosage: WHEN NEEDED (NOT MORE THAN 30 MG PER DAY)
     Route: 065
  20. NORVASC [Concomitant]
     Active Substance: AMLODIPINE BESYLATE
     Dosage: 5 MILLIGRAM, QD
     Route: 048

REACTIONS (4)
  - Neurotoxicity [Unknown]
  - Diarrhoea [Unknown]
  - Palmar-plantar erythrodysaesthesia syndrome [Unknown]
  - Nausea [Unknown]

NARRATIVE: CASE EVENT DATE: 2016
